FAERS Safety Report 26090745 (Version 1)
Quarter: 2025Q4

REPORT INFORMATION
  Report Type: Spontaneous
  Country: CN (occurrence: CN)
  Receive Date: 20251126
  Receipt Date: 20251126
  Transmission Date: 20260117
  Serious: Yes (Other)
  Sender: ABBVIE
  Company Number: CN-ABBVIE-6560536

PATIENT
  Age: 57 Year
  Sex: Female
  Weight: 46 kg

DRUGS (2)
  1. VENETOCLAX [Suspect]
     Active Substance: VENETOCLAX
     Indication: Acute myeloid leukaemia
     Dosage: 1 TABLET ON DAY 1, 2 TABLETS ON DAY 2, FROM DAY 3 ONWARD 4 TABLETS DAILY
     Route: 048
     Dates: start: 20251101, end: 20251108
  2. AZACITIDINE [Suspect]
     Active Substance: AZACITIDINE
     Indication: Acute myeloid leukaemia
     Dosage: 75 MG/M^2 ON DAYS ONE TO FIVE
     Route: 058
     Dates: start: 20251101, end: 20251105

REACTIONS (1)
  - Myelosuppression [Unknown]

NARRATIVE: CASE EVENT DATE: 20251106
